FAERS Safety Report 12959246 (Version 1)
Quarter: 2016Q4

REPORT INFORMATION
  Report Type: Report from Study
  Country: JP (occurrence: JP)
  Receive Date: 20161121
  Receipt Date: 20161121
  Transmission Date: 20170207
  Serious: Yes (Life-Threatening, Hospitalization)
  Sender: FDA-Public Use
  Company Number: JP-ASTELLAS-2005JP002167

PATIENT
  Age: 11 Year
  Sex: Female
  Weight: 29 kg

DRUGS (12)
  1. SOLU-MEDROL [Concomitant]
     Active Substance: METHYLPREDNISOLONE SODIUM SUCCINATE
     Route: 042
     Dates: start: 20011007, end: 20011010
  2. DIFLUCAN [Concomitant]
     Active Substance: FLUCONAZOLE
     Indication: LIVER TRANSPLANT
     Route: 042
     Dates: start: 20011002, end: 20011015
  3. CARBENIN [Concomitant]
     Active Substance: BETAMIPRON\PANIPENEM
     Indication: LIVER TRANSPLANT
     Dosage: 0.3 G, THRICE DAILY
     Route: 042
     Dates: start: 20011007, end: 20011015
  4. SOLU-MEDROL [Concomitant]
     Active Substance: METHYLPREDNISOLONE SODIUM SUCCINATE
     Indication: IMMUNOSUPPRESSANT DRUG THERAPY
     Route: 042
     Dates: start: 20011003, end: 20011003
  5. CEFMETAZON [Concomitant]
     Active Substance: CEFMETAZOLE SODIUM
     Indication: LIVER TRANSPLANT
     Dosage: 0.5 G, THRICE DAILY
     Route: 042
     Dates: start: 20011002, end: 20011006
  6. ZOVIRAX [Concomitant]
     Active Substance: ACYCLOVIR
     Indication: LIVER TRANSPLANT
     Route: 042
     Dates: start: 20011002, end: 20011009
  7. FOY [Concomitant]
     Active Substance: GABEXATE MESYLATE
     Indication: LIVER TRANSPLANT
     Route: 041
     Dates: start: 20011002, end: 20011009
  8. TACROLIMUS. [Suspect]
     Active Substance: TACROLIMUS
     Indication: IMMUNOSUPPRESSANT DRUG THERAPY
     Dosage: 1 - 1.5 MG,  TWICE DAILY
     Route: 050
     Dates: start: 20011001, end: 20011009
  9. SOLU-MEDROL [Concomitant]
     Active Substance: METHYLPREDNISOLONE SODIUM SUCCINATE
     Route: 042
     Dates: start: 20011004, end: 20011006
  10. GAMMAGARD [Concomitant]
     Active Substance: HUMAN IMMUNOGLOBULIN G
     Indication: LIVER TRANSPLANT
     Route: 042
     Dates: start: 20011002, end: 20011015
  11. ZANTAC [Concomitant]
     Active Substance: RANITIDINE HYDROCHLORIDE
     Indication: LIVER TRANSPLANT
     Route: 042
     Dates: start: 20011002, end: 20011015
  12. IMURAN [Concomitant]
     Active Substance: AZATHIOPRINE
     Indication: IMMUNOSUPPRESSANT DRUG THERAPY
     Dosage: 20-25MG, ONCE DAILY
     Route: 050
     Dates: start: 20011003

REACTIONS (2)
  - Intentional product misuse [Unknown]
  - Leukoencephalopathy [Recovering/Resolving]

NARRATIVE: CASE EVENT DATE: 20011001
